FAERS Safety Report 10958972 (Version 1)
Quarter: 2015Q1

REPORT INFORMATION
  Report Type: Spontaneous
  Country: BG (occurrence: BG)
  Receive Date: 20150327
  Receipt Date: 20150327
  Transmission Date: 20150721
  Serious: Yes (Other)
  Sender: FDA-Public Use
  Company Number: PHHY2015BG034329

PATIENT
  Age: 4 Year
  Sex: Male
  Weight: 14 kg

DRUGS (2)
  1. XIMEBAC [Suspect]
     Active Substance: CEFPODOXIME
     Indication: PHARYNGITIS
     Dosage: 64 MG, UNK
     Route: 048
     Dates: start: 20150308
  2. XIMEBAC [Suspect]
     Active Substance: CEFPODOXIME
     Indication: TRACHEITIS

REACTIONS (7)
  - Lung infection [Unknown]
  - Pyrexia [Unknown]
  - Decreased appetite [Unknown]
  - Malaise [Unknown]
  - Cough [Unknown]
  - Rhinitis [Unknown]
  - Drug ineffective [Recovering/Resolving]
